FAERS Safety Report 6522409-2 (Version None)
Quarter: 2009Q4

REPORT INFORMATION
  Report Type: 
  Country: None (occurrence: None)
  Receive Date: 20091229
  Receipt Date: 20091229
  Transmission Date: 20100525
  Serious: Yes (Death, Life-Threatening, Hospitalization)
  Sender: FDA-Public Use
  Company Number: None

PATIENT
  Age: 74 Year
  Sex: Female
  Weight: 102 kg

DRUGS (1)
  1. TNKASE [Suspect]
     Indication: ACUTE MYOCARDIAL INFARCTION
     Dosage: 50MG ONCE IV BOLUS
     Route: 040
     Dates: start: 20091130, end: 20091130

REACTIONS (9)
  - ATRIOVENTRICULAR BLOCK COMPLETE [None]
  - BRAIN DEATH [None]
  - BRAIN STEM ISCHAEMIA [None]
  - CARDIO-RESPIRATORY ARREST [None]
  - CARDIOGENIC SHOCK [None]
  - HAEMORRHAGIC CEREBRAL INFARCTION [None]
  - RESPIRATORY FAILURE [None]
  - TREATMENT FAILURE [None]
  - VENTRICULAR TACHYCARDIA [None]
